FAERS Safety Report 20516541 (Version 1)
Quarter: 2022Q1

REPORT INFORMATION
  Report Type: Spontaneous
  Country: FR (occurrence: FR)
  Receive Date: 20220225
  Receipt Date: 20220225
  Transmission Date: 20220423
  Serious: Yes (Hospitalization, Congenital Anomaly, Other)
  Sender: FDA-Public Use
  Company Number: FR-ABBVIE-22K-056-4290209-00

PATIENT
  Sex: Male

DRUGS (4)
  1. VALPROATE SODIUM [Suspect]
     Active Substance: VALPROATE SODIUM
     Indication: Maternal exposure timing unspecified
     Route: 064
  2. FOLIC ACID [Concomitant]
     Active Substance: FOLIC ACID
     Indication: Maternal exposure timing unspecified
  3. ATARAX [Concomitant]
     Active Substance: HYDROXYZINE HYDROCHLORIDE
     Indication: Maternal exposure timing unspecified
  4. CELESTENE [Concomitant]
     Indication: Maternal exposure timing unspecified

REACTIONS (62)
  - Neonatal respiratory distress syndrome [Unknown]
  - Premature baby [Unknown]
  - Cerebral haemorrhage neonatal [Unknown]
  - Intraventricular haemorrhage [Unknown]
  - Cerebral ventricle dilatation [Unknown]
  - Retinopathy [Unknown]
  - Bronchopulmonary dysplasia [Unknown]
  - Periventricular haemorrhage neonatal [Unknown]
  - Dyspnoea [Unknown]
  - Vertical infection transmission [Unknown]
  - Heart alternation [Unknown]
  - Periventricular leukomalacia [Unknown]
  - Dilatation ventricular [Unknown]
  - Bronchopulmonary dysplasia [Unknown]
  - Emphysema [Unknown]
  - Hypertension neonatal [Unknown]
  - Retinopathy [Unknown]
  - Pulmonary arterial hypertension [Unknown]
  - Inguinal hernia [Unknown]
  - Plagiocephaly [Unknown]
  - Speech disorder developmental [Unknown]
  - Psychotic behaviour [Unknown]
  - Echolalia [Unknown]
  - Deafness bilateral [Unknown]
  - Disorientation [Unknown]
  - Social (pragmatic) communication disorder [Unknown]
  - Autism spectrum disorder [Unknown]
  - Aggression [Unknown]
  - Gap junction protein beta 2 gene mutation [Unknown]
  - Skin hypertrophy [Unknown]
  - Autism spectrum disorder [Unknown]
  - Apraxia [Unknown]
  - Strabismus [Unknown]
  - Autism spectrum disorder [Unknown]
  - Sinobronchitis [Unknown]
  - Neonatal hypotension [Unknown]
  - Foetal growth restriction [Unknown]
  - Enteral nutrition [Unknown]
  - Sodium retention [Unknown]
  - Respiratory failure [Unknown]
  - Intraventricular haemorrhage neonatal [Unknown]
  - Childhood asthma [Unknown]
  - Cerebral haemorrhage [Unknown]
  - Dyspnoea [Unknown]
  - Lower respiratory tract congestion [Unknown]
  - Bronchial dysplasia [Unknown]
  - Inguinal hernia [Unknown]
  - Respiratory tract congestion [Unknown]
  - Gastroenteritis [Unknown]
  - Balance disorder [Unknown]
  - Paraesthesia [Unknown]
  - Attention deficit hyperactivity disorder [Unknown]
  - Patent ductus arteriosus [Unknown]
  - Fine motor delay [Unknown]
  - Stereotypy [Unknown]
  - Apraxia [Unknown]
  - Neurodevelopmental disorder [Unknown]
  - Psychomotor retardation [Unknown]
  - Foetal growth restriction [Unknown]
  - Hypertension neonatal [Unknown]
  - Low birth weight baby [Unknown]
  - Foetal exposure during pregnancy [Unknown]
